FAERS Safety Report 8837622 (Version 2)
Quarter: 2013Q3

REPORT INFORMATION
  Report Type: Spontaneous
  Country: US (occurrence: US)
  Receive Date: 20121012
  Receipt Date: 20130722
  Transmission Date: 20140515
  Serious: Yes (Other)
  Sender: FDA-Public Use
  Company Number: US-ROCHE-1139562

PATIENT
  Sex: Male
  Weight: 13 kg

DRUGS (5)
  1. PROTROPIN [Suspect]
     Indication: CHARGE SYNDROME
     Route: 058
     Dates: start: 20000216
  2. PROTROPIN [Suspect]
     Indication: BLOOD THYROID STIMULATING HORMONE DECREASED
  3. PROTROPIN [Suspect]
     Indication: GROWTH HORMONE DEFICIENCY
  4. LEVOXYL [Concomitant]
     Route: 048
  5. CARNITINE [Concomitant]

REACTIONS (1)
  - Pneumonia [Recovered/Resolved]
